FAERS Safety Report 19321354 (Version 1)
Quarter: 2021Q2

REPORT INFORMATION
  Report Type: Spontaneous
  Country: CN (occurrence: CN)
  Receive Date: 20210528
  Receipt Date: 20210528
  Transmission Date: 20210717
  Serious: Yes (Other)
  Sender: FDA-Public Use
  Company Number: CN-009507513-2105CHN005167

PATIENT
  Age: 47 Year
  Sex: Female
  Weight: 64.5 kg

DRUGS (3)
  1. NOXAFIL [Suspect]
     Active Substance: POSACONAZOLE
     Indication: ANTIFUNGAL TREATMENT
     Dosage: 10 MILLILITER, THREE TIMES A DAY (TID)
     Route: 048
     Dates: start: 20210508, end: 20210515
  2. COMPOUND SULFAMETHOXAZOLE [Suspect]
     Active Substance: SULFAMETHOXAZOLE
     Indication: ANTIBIOTIC THERAPY
     Dosage: 2 DOSAGE FORM (REPORTD AS 2 PILLS), ONE TIME A DAY (QD)
     Route: 048
     Dates: start: 20210510, end: 20210513
  3. LEVOFLOXACIN. [Suspect]
     Active Substance: LEVOFLOXACIN
     Indication: ANTIBIOTIC THERAPY
     Dosage: 0.5 GRAM, ONE TIME A DAY (QD)
     Route: 041
     Dates: start: 20210507, end: 20210513

REACTIONS (4)
  - Agranulocytosis [Recovered/Resolved]
  - Cytomegalovirus test positive [Unknown]
  - Cytomegalovirus infection [Unknown]
  - White blood cell count decreased [Recovered/Resolved]

NARRATIVE: CASE EVENT DATE: 202105
